FAERS Safety Report 9372892 (Version 2)
Quarter: 2013Q3

REPORT INFORMATION
  Report Type: Report from Study
  Country: BR (occurrence: BR)
  Receive Date: 20130627
  Receipt Date: 20130701
  Transmission Date: 20140515
  Serious: Yes (Life-Threatening, Other)
  Sender: FDA-Public Use
  Company Number: PHHY2013BR066098

PATIENT
  Age: 76 Year
  Sex: Male

DRUGS (3)
  1. APRESOLIN [Suspect]
     Indication: HYPERTENSION
     Dosage: 3 DF (50 MG) PER DAY
     Route: 048
  2. DIOVAN TRIPLE [Suspect]
     Indication: HYPERTENSION
     Dosage: 2 DF (VALS 160 MG, AMLO 5 MG, HCTZ 12.5 MG) PER DAY
     Route: 048
  3. ALDOMET [Suspect]

REACTIONS (9)
  - Apparent death [Recovered/Resolved]
  - Blood pressure decreased [Recovered/Resolved]
  - Depressed level of consciousness [Recovered/Resolved]
  - Diarrhoea [Recovered/Resolved]
  - Headache [Recovered/Resolved]
  - Dizziness [Recovered/Resolved]
  - Fatigue [Unknown]
  - Mitral valve incompetence [Unknown]
  - Blood pressure increased [Not Recovered/Not Resolved]
